FAERS Safety Report 11244900 (Version 2)
Quarter: 2015Q3

REPORT INFORMATION
  Report Type: Report from Study
  Country: DE (occurrence: DE)
  Receive Date: 20150707
  Receipt Date: 20150715
  Transmission Date: 20151125
  Serious: Yes (Hospitalization)
  Sender: FDA-Public Use
  Company Number: DE-TEVA-558719USA

PATIENT
  Age: 80 Year
  Sex: Male

DRUGS (12)
  1. BORTEZOMIB [Suspect]
     Active Substance: BORTEZOMIB
     Indication: PLASMA CELL MYELOMA
     Dosage: 2.7-2.0MG, UNKNOWN FREQ.
     Route: 058
     Dates: start: 20150407, end: 20150417
  2. VALSARTAN. [Concomitant]
     Active Substance: VALSARTAN
     Indication: HYPERTENSION
     Dosage: 0.5 DF, ONCE DAILY (160/25 MG)
     Route: 048
     Dates: end: 20150420
  3. BENDAMUSTINE HYDROCHLORIDE [Suspect]
     Active Substance: BENDAMUSTINE HYDROCHLORIDE
     Indication: PLASMA CELL MYELOMA
     Route: 042
     Dates: start: 20150407, end: 20150408
  4. PREDNISON [Suspect]
     Active Substance: PREDNISONE
     Route: 048
     Dates: end: 20150601
  5. METOPROLOL [Concomitant]
     Active Substance: METOPROLOL
     Indication: HYPERTENSION
     Dosage: 0.5 DF, ONCE DAILY
     Route: 048
     Dates: end: 20150420
  6. BENDAMUSTINE HYDROCHLORIDE [Suspect]
     Active Substance: BENDAMUSTINE HYDROCHLORIDE
     Dosage: 188 UNK, UNK
     Route: 042
     Dates: end: 20150601
  7. BORTEZOMIB [Suspect]
     Active Substance: BORTEZOMIB
     Dosage: 2.0MG, UNKNOWN FREQ.
     Route: 058
     Dates: end: 20150601
  8. FLUVASTATIN [Concomitant]
     Active Substance: FLUVASTATIN SODIUM
     Indication: BLOOD CHOLESTEROL INCREASED
     Route: 048
     Dates: end: 20150420
  9. ASPIRIN. [Concomitant]
     Active Substance: ASPIRIN
     Indication: CORONARY ARTERY DISEASE
     Route: 048
     Dates: end: 20150420
  10. PREDNISON [Suspect]
     Active Substance: PREDNISONE
     Indication: PLASMA CELL MYELOMA
     Route: 048
     Dates: start: 20150407, end: 20150410
  11. CLEXANE [Concomitant]
     Active Substance: ENOXAPARIN SODIUM
     Indication: CORONARY ARTERY DISEASE
     Route: 058
     Dates: end: 20150420
  12. INSULIN [Concomitant]
     Active Substance: INSULIN NOS
     Indication: DIABETES MELLITUS
     Dosage: DEPENDING ON BLOOD SUGAR LEVEL.
     Route: 065
     Dates: end: 20150420

REACTIONS (1)
  - Pneumonia [Recovered/Resolved]

NARRATIVE: CASE EVENT DATE: 20150420
